FAERS Safety Report 8258131-4 (Version None)
Quarter: 2012Q2

REPORT INFORMATION
  Report Type: 
  Country: None (occurrence: None)
  Receive Date: 20120404
  Receipt Date: 20120327
  Transmission Date: 20120825
  Serious: Yes (Other)
  Sender: FDA-Public Use
  Company Number: PHHY2012BR005571

PATIENT
  Age: 46 Year
  Sex: Male

DRUGS (1)
  1. EXFORGE HCT [Suspect]
     Dosage: 2 TABLETS (160/25/10 MG) A DAY, 1 IN THE MORNING AND 1 AT NIGHT

REACTIONS (1)
  - DIABETES MELLITUS [None]
